FAERS Safety Report 24066297 (Version 3)
Quarter: 2024Q3

REPORT INFORMATION
  Report Type: Spontaneous
  Country: US (occurrence: None)
  Receive Date: 20240709
  Receipt Date: 20240822
  Transmission Date: 20241017
  Serious: Yes (Hospitalization, Other)
  Sender: ASTRAZENECA
  Company Number: 2024A152263

PATIENT
  Age: 74 Year
  Sex: Male
  Weight: 81.7 kg

DRUGS (22)
  1. OLAPARIB [Suspect]
     Active Substance: OLAPARIB
     Indication: Adenocarcinoma metastatic
     Route: 048
     Dates: start: 20231220, end: 20240117
  2. OLAPARIB [Suspect]
     Active Substance: OLAPARIB
     Indication: Adenocarcinoma metastatic
     Route: 048
     Dates: start: 20240118, end: 20240214
  3. OLAPARIB [Suspect]
     Active Substance: OLAPARIB
     Indication: Adenocarcinoma metastatic
     Route: 048
     Dates: start: 20240215, end: 20240313
  4. OLAPARIB [Suspect]
     Active Substance: OLAPARIB
     Indication: Adenocarcinoma metastatic
     Route: 048
     Dates: start: 20240314, end: 20240424
  5. OLAPARIB [Suspect]
     Active Substance: OLAPARIB
     Indication: Adenocarcinoma metastatic
     Route: 048
     Dates: start: 20240508, end: 20240605
  6. METOPROLOL [Suspect]
     Active Substance: METOPROLOL
     Dosage: UNKNOWN
     Route: 048
     Dates: start: 20240122
  7. ATORVASTATIN [Concomitant]
     Active Substance: ATORVASTATIN
     Dates: start: 20220928
  8. LEUPROLIDE ACETATE [Concomitant]
     Active Substance: ISOPROPYL ALCOHOL\LEUPROLIDE ACETATE
     Dates: start: 20220105
  9. LOVENOX [Concomitant]
     Active Substance: ENOXAPARIN SODIUM
     Dates: start: 20231108
  10. FLECAINIDE [Concomitant]
     Active Substance: FLECAINIDE
     Dates: start: 20231130
  11. SPIRONOLACTONE [Concomitant]
     Active Substance: SPIRONOLACTONE
     Dates: start: 20231030
  12. VITAMINS [Concomitant]
     Active Substance: VITAMINS
     Dates: start: 20231221
  13. DIGOXIN [Concomitant]
     Active Substance: DIGOXIN
     Dates: start: 20230509
  14. AMIODARONE [Concomitant]
     Active Substance: AMIODARONE
  15. DILTIAZEM [Concomitant]
     Active Substance: DILTIAZEM
  16. METOPROLOL [Concomitant]
     Active Substance: METOPROLOL
  17. MIDODRINE [Concomitant]
     Active Substance: MIDODRINE
     Dates: start: 20240307
  18. LEVOTHYROXINE [Concomitant]
     Active Substance: LEVOTHYROXINE\LEVOTHYROXINE SODIUM
     Dates: start: 20240314
  19. LANTUS [Concomitant]
     Active Substance: INSULIN GLARGINE
     Dates: start: 20220928
  20. BENADRYL [Concomitant]
     Active Substance: DIPHENHYDRAMINE HYDROCHLORIDE
     Dates: start: 20240122
  21. CALCIPOTRIENE [Concomitant]
     Active Substance: CALCIPOTRIENE
     Dates: start: 20240327
  22. FLUOCINONIDE [Concomitant]
     Active Substance: FLUOCINONIDE
     Dates: start: 20240327

REACTIONS (22)
  - Pneumonia [Not Recovered/Not Resolved]
  - Asthenia [Unknown]
  - Fatigue [Unknown]
  - Productive cough [Unknown]
  - Dyspnoea [Unknown]
  - Dehydration [Unknown]
  - Infection [Unknown]
  - Leukocytosis [Unknown]
  - Neutrophil count abnormal [Unknown]
  - Haemoglobin decreased [Unknown]
  - Hypercalcaemia [Unknown]
  - Troponin abnormal [Unknown]
  - Lung opacity [Unknown]
  - Atrial flutter [Recovered/Resolved]
  - Metastases to lymph nodes [Unknown]
  - Hypotension [Unknown]
  - Muscular weakness [Unknown]
  - Drug intolerance [Unknown]
  - Brevibacterium test positive [Unknown]
  - White blood cell count decreased [Unknown]
  - Hypotension [Unknown]
  - Underdose [Unknown]

NARRATIVE: CASE EVENT DATE: 20240229
